FAERS Safety Report 8430370-9 (Version None)
Quarter: 2012Q2

REPORT INFORMATION
  Report Type: 
  Country: None (occurrence: None)
  Receive Date: 20120323
  Receipt Date: 20110714
  Transmission Date: 20120825
  Serious: Yes (Hospitalization)
  Sender: FDA-Public Use
  Company Number: 163-21880-11060780

PATIENT
  Age: 50 Year
  Sex: Male

DRUGS (4)
  1. STEROIDS (GLUCOCORTICOIDS) [Concomitant]
  2. VELCADE [Concomitant]
  3. REVLIMID [Suspect]
     Indication: MULTIPLE MYELOMA
     Dosage: 25 MG, DAILY FOR 14 DAYS; STOP 14 DAYSL STOP 1 WK, RESUME, PO; 25 MG, DAILY FOR 21 DAYS, PO
     Route: 048
     Dates: start: 20110419, end: 20110101
  4. REVLIMID [Suspect]
     Indication: MULTIPLE MYELOMA
     Dosage: 25 MG, DAILY FOR 14 DAYS; STOP 14 DAYSL STOP 1 WK, RESUME, PO; 25 MG, DAILY FOR 21 DAYS, PO
     Route: 048
     Dates: start: 20110601

REACTIONS (3)
  - CHEST PAIN [None]
  - MYOCARDIAL INFARCTION [None]
  - OEDEMA PERIPHERAL [None]
